FAERS Safety Report 7387296-1 (Version None)
Quarter: 2011Q1

REPORT INFORMATION
  Report Type: 
  Country: None (occurrence: None)
  Receive Date: 20110331
  Receipt Date: 20110321
  Transmission Date: 20110831
  Serious: Yes (Hospitalization, Other)
  Sender: FDA-Public Use
  Company Number: US-EISAI INC-E3810-04557-SPO-US

PATIENT
  Sex: Female
  Weight: 54 kg

DRUGS (7)
  1. FOLIC ACID [Concomitant]
     Indication: RHEUMATOID ARTHRITIS
     Route: 048
  2. INFLIXIMAB [Concomitant]
     Indication: RHEUMATOID ARTHRITIS
     Route: 041
  3. ACIPHEX [Suspect]
     Indication: GASTROOESOPHAGEAL REFLUX DISEASE
     Route: 048
  4. RECLAST [Concomitant]
     Route: 041
  5. LISINOPRIL [Concomitant]
     Route: 048
  6. OXYBUTYNIN [Concomitant]
     Indication: BLADDER DISORDER
     Route: 048
  7. LIPITOR [Concomitant]
     Indication: BLOOD CHOLESTEROL
     Route: 048

REACTIONS (5)
  - ACARODERMATITIS [None]
  - ERYTHEMA [None]
  - PAIN IN EXTREMITY [None]
  - HYPOTENSION [None]
  - MUSCULAR WEAKNESS [None]
